FAERS Safety Report 7920335-5 (Version None)
Quarter: 2011Q4

REPORT INFORMATION
  Report Type: 
  Country: None (occurrence: None)
  Receive Date: 20111117
  Receipt Date: 20111107
  Transmission Date: 20120403
  Serious: No
  Sender: FDA-Public Use
  Company Number: US-ELI_LILLY_AND_COMPANY-US201108008757

PATIENT
  Sex: Female

DRUGS (5)
  1. ZYPREXA [Suspect]
     Dosage: UNK
     Route: 065
  2. ZYPREXA [Suspect]
     Dosage: UNK, QD
  3. ZYPREXA [Suspect]
     Route: 065
  4. RISPERDAL [Concomitant]
  5. ZYPREXA [Suspect]
     Indication: BIPOLAR DISORDER
     Dosage: 23.75 MG, QD

REACTIONS (12)
  - SELF INJURIOUS BEHAVIOUR [None]
  - OVERDOSE [None]
  - WEIGHT INCREASED [None]
  - DRUG INEFFECTIVE [None]
  - MENORRHAGIA [None]
  - DEPRESSED MOOD [None]
  - NERVOUSNESS [None]
  - COMMUNICATION DISORDER [None]
  - SCREAMING [None]
  - ABNORMAL BEHAVIOUR [None]
  - ADVERSE DRUG REACTION [None]
  - AGGRESSION [None]
